FAERS Safety Report 8922158 (Version 1)
Quarter: 2012Q4

REPORT INFORMATION
  Report Type: Spontaneous
  Country: US (occurrence: None)
  Receive Date: 20121120
  Receipt Date: 20121120
  Transmission Date: 20130627
  Serious: Yes (Life-Threatening, Hospitalization)
  Sender: FDA-Public Use
  Company Number: None

PATIENT
  Age: 49 Year
  Sex: Female
  Weight: 79 kg

DRUGS (1)
  1. MICAFUNGIN [Suspect]
     Indication: YEAST INFECTION
     Dosage: 100 mg every 24 hours IV
     Route: 042
     Dates: start: 20121028, end: 20121030

REACTIONS (4)
  - Thrombotic thrombocytopenic purpura [None]
  - Renal failure acute [None]
  - Encephalopathy [None]
  - Cyanosis [None]
